FAERS Safety Report 4837633-4 (Version None)
Quarter: 2005Q4

REPORT INFORMATION
  Report Type: 
  Country: None (occurrence: None)
  Receive Date: 20051128
  Receipt Date: 20051115
  Transmission Date: 20060501
  Serious: Yes (Disabling)
  Sender: FDA-Public Use
  Company Number: 2005SE06643

PATIENT
  Age: 60 Year
  Sex: Male

DRUGS (3)
  1. NAROPIN [Suspect]
     Indication: BACK PAIN
     Dosage: 2 MG/ML 10 ML DILUTED IN 200 ML SALINE ADMINISTERED OVER 24 HOURS
     Route: 008
  2. NAROPIN [Suspect]
     Dosage: 2 MG/ML 20 ML DILUTED IN 200 ML SALINE ADMINISTERED OVER 24 HOURS
     Route: 008
  3. DEPO-MEDROL [Concomitant]
     Indication: INFLAMMATION

REACTIONS (2)
  - ASTHENIA [None]
  - DYSURIA [None]
